FAERS Safety Report 10538017 (Version 1)
Quarter: 2014Q4

REPORT INFORMATION
  Report Type: Spontaneous
  Country: ES (occurrence: ES)
  Receive Date: 20141023
  Receipt Date: 20141023
  Transmission Date: 20150529
  Serious: Yes (Hospitalization)
  Sender: FDA-Public Use
  Company Number: ES-TEVA-516544ISR

PATIENT
  Age: 53 Year
  Sex: Female

DRUGS (9)
  1. CITALOPRAM [Suspect]
     Active Substance: CITALOPRAM HYDROBROMIDE
     Indication: ANTIDEPRESSANT THERAPY
     Dosage: 20 MILLIGRAM DAILY; 20MG/D
     Route: 065
  2. AGOMELATINE [Concomitant]
     Active Substance: AGOMELATINE
     Dosage: 25 MILLIGRAM DAILY; 25MG/DAY;
     Route: 065
  3. DIPOTASSIUM CLORAZEPATE [Concomitant]
     Active Substance: CLORAZEPATE DIPOTASSIUM
     Dosage: 10 MILLIGRAM DAILY; 10MG: 3 CAPSULE/DAY
     Route: 065
  4. VENLAFAXINE [Suspect]
     Active Substance: VENLAFAXINE HYDROCHLORIDE
     Indication: ANTIDEPRESSANT THERAPY
     Dosage: 150 MILLIGRAM DAILY; 150MG/DAY; DELAYED RELEASE
     Route: 065
  5. HALOPERIDOL. [Suspect]
     Active Substance: HALOPERIDOL
     Indication: ANTIDEPRESSANT THERAPY
     Dosage: 20 DROPS /DAY
     Route: 065
  6. HYDROCHLOROTHIAZIDE, AMILORIDE [Suspect]
     Active Substance: AMILORIDE HYDROCHLORIDE\HYDROCHLOROTHIAZIDE
     Indication: ANTIDEPRESSANT THERAPY
     Dosage: AMILORIDE/HYDROCLOROTIAZIDE 5/50 G 1CAPSULE/D
     Route: 065
  7. ENALAPRIL [Suspect]
     Active Substance: ENALAPRIL
     Indication: ANTIDEPRESSANT THERAPY
     Route: 065
  8. ESCITALOPRAM [Suspect]
     Active Substance: ESCITALOPRAM OXALATE
     Indication: ANTIDEPRESSANT THERAPY
     Dosage: 10 MILLIGRAM DAILY; 10MG/DAY
     Route: 065
  9. OLANZAPINE. [Suspect]
     Active Substance: OLANZAPINE
     Indication: ANTIDEPRESSANT THERAPY
     Dosage: 5 MILLIGRAM DAILY; 5MG/DAY
     Route: 065

REACTIONS (1)
  - Hyponatraemia [Recovering/Resolving]
